FAERS Safety Report 13423167 (Version 1)
Quarter: 2017Q2

REPORT INFORMATION
  Report Type: Spontaneous
  Country: US (occurrence: US)
  Receive Date: 20170410
  Receipt Date: 20170410
  Transmission Date: 20170830
  Serious: No
  Sender: FDA-Public Use
  Company Number: US-AMGEN-USASP2017051529

PATIENT
  Age: 46 Year
  Sex: Female

DRUGS (1)
  1. ENBREL [Suspect]
     Active Substance: ETANERCEPT
     Indication: RHEUMATOID ARTHRITIS
     Dosage: 50 MG, QWK
     Route: 065
     Dates: start: 201702

REACTIONS (9)
  - Swelling [Not Recovered/Not Resolved]
  - Gastritis [Unknown]
  - Diarrhoea [Unknown]
  - Injection site reaction [Unknown]
  - Memory impairment [Unknown]
  - Vomiting [Unknown]
  - Nervous system disorder [Unknown]
  - Influenza [Unknown]
  - Inflammation [Not Recovered/Not Resolved]

NARRATIVE: CASE EVENT DATE: 2017
